FAERS Safety Report 10524511 (Version 2)
Quarter: 2014Q4

REPORT INFORMATION
  Report Type: Spontaneous
  Country: US (occurrence: US)
  Receive Date: 20141017
  Receipt Date: 20141119
  Transmission Date: 20150528
  Serious: Yes (Other)
  Sender: FDA-Public Use
  Company Number: US-SUN PHARMACEUTICAL INDUSTRIES LTD-2014SUN02307

PATIENT
  Age: 34 Year
  Sex: Female

DRUGS (3)
  1. DILTIAZEM HYDROCHLORIDE EXTENDED-RELEASE [Suspect]
     Active Substance: DILTIAZEM HYDROCHLORIDE
     Indication: PRODUCT USED FOR UNKNOWN INDICATION
     Dosage: 720 MG, QD
     Route: 048
     Dates: start: 201407, end: 201410
  2. CLONIDINE. [Suspect]
     Active Substance: CLONIDINE
     Indication: PRODUCT USED FOR UNKNOWN INDICATION
     Dosage: 0.2 MG, UNK
     Route: 048
     Dates: start: 201407, end: 201410
  3. CLONIDINE TABLETS [Concomitant]
     Dosage: 0.1 MG, UNK

REACTIONS (5)
  - Dizziness [Recovered/Resolved]
  - Malaise [Recovered/Resolved]
  - Product contamination physical [Unknown]
  - Wrong drug administered [Unknown]
  - Product commingling [Unknown]

NARRATIVE: CASE EVENT DATE: 2014
